FAERS Safety Report 17308798 (Version 1)
Quarter: 2020Q1

REPORT INFORMATION
  Report Type: Spontaneous
  Country: US (occurrence: US)
  Receive Date: 20200123
  Receipt Date: 20200123
  Transmission Date: 20200409
  Serious: Yes (Hospitalization)
  Sender: FDA-Public Use
  Company Number: None

PATIENT
  Age: 41 Year
  Sex: Female

DRUGS (11)
  1. REXULTI [Concomitant]
     Active Substance: BREXPIPRAZOLE
     Dates: start: 20191111
  2. ALPRAZOLAM. [Concomitant]
     Active Substance: ALPRAZOLAM
     Dates: start: 20191221
  3. ENBREL [Concomitant]
     Active Substance: ETANERCEPT
     Dates: start: 20190920
  4. GABAPENTIN. [Concomitant]
     Active Substance: GABAPENTIN
     Dates: start: 20191221
  5. TRAZODONE [Concomitant]
     Active Substance: TRAZODONE HYDROCHLORIDE
     Dates: start: 20191115
  6. XELJANZ [Suspect]
     Active Substance: TOFACITINIB CITRATE
     Indication: PSORIATIC ARTHROPATHY
     Dosage: ?          OTHER FREQUENCY:TWICE DAILY;?
     Route: 048
     Dates: start: 20191112
  7. DULOXETINE. [Concomitant]
     Active Substance: DULOXETINE
     Dates: start: 20191209
  8. LITHIUM CARB [Concomitant]
     Active Substance: LITHIUM CARBONATE
     Dates: start: 20191203
  9. PANTOPRAZOLE [Concomitant]
     Active Substance: PANTOPRAZOLE
     Dates: start: 20190905
  10. DIVALPROEX [Concomitant]
     Active Substance: DIVALPROEX SODIUM
     Dates: start: 20191115
  11. VALACYCLOVIR [Concomitant]
     Active Substance: VALACYCLOVIR HYDROCHLORIDE
     Dates: start: 20200121

REACTIONS (3)
  - Therapy cessation [None]
  - Depression [None]
  - Condition aggravated [None]

NARRATIVE: CASE EVENT DATE: 20191213
